FAERS Safety Report 25228612 (Version 2)
Quarter: 2025Q2

REPORT INFORMATION
  Report Type: Spontaneous
  Country: LU (occurrence: LU)
  Receive Date: 20250423
  Receipt Date: 20250614
  Transmission Date: 20250717
  Serious: Yes (Hospitalization, Disabling)
  Sender: ROCHE
  Company Number: None

PATIENT
  Age: 56 Year
  Sex: Male

DRUGS (5)
  1. OCREVUS [Suspect]
     Active Substance: OCRELIZUMAB
     Indication: Progressive multiple sclerosis
     Route: 042
     Dates: start: 20240606
  2. OCREVUS [Suspect]
     Active Substance: OCRELIZUMAB
     Route: 042
     Dates: start: 20240306, end: 20240306
  3. Tamsulosine EG 0,4 MG [Concomitant]
     Indication: Benign prostatic hyperplasia
     Route: 048
  4. AMLODIPINE BESYLATE [Concomitant]
     Active Substance: AMLODIPINE BESYLATE
     Indication: Hypertension
     Route: 048
  5. AMLODIPINE BESYLATE [Concomitant]
     Active Substance: AMLODIPINE BESYLATE

REACTIONS (1)
  - Colitis [Recovered/Resolved]

NARRATIVE: CASE EVENT DATE: 20241101
